FAERS Safety Report 25089455 (Version 1)
Quarter: 2025Q1

REPORT INFORMATION
  Report Type: Spontaneous
  Country: US (occurrence: None)
  Receive Date: 20250317
  Receipt Date: 20250317
  Transmission Date: 20250408
  Serious: No
  Sender: FDA-CTU
  Company Number: None

PATIENT
  Age: 77 Year
  Sex: Male
  Weight: 112 kg

DRUGS (2)
  1. HEPARIN SODIUM [Suspect]
     Active Substance: HEPARIN SODIUM
     Indication: Atrial fibrillation
     Dates: start: 20250130, end: 20250201
  2. WARFARIN SODIUM [Suspect]
     Active Substance: WARFARIN SODIUM
     Indication: Atrial fibrillation
     Dates: start: 20250130

REACTIONS (5)
  - Gingival bleeding [None]
  - Mouth haemorrhage [None]
  - Cardiac failure [None]
  - Condition aggravated [None]
  - Tooth extraction [None]

NARRATIVE: CASE EVENT DATE: 20250201
